FAERS Safety Report 23326349 (Version 1)
Quarter: 2023Q4

REPORT INFORMATION
  Report Type: Spontaneous
  Country: US (occurrence: US)
  Receive Date: 20231221
  Receipt Date: 20231221
  Transmission Date: 20240110
  Serious: No
  Sender: FDA-Public Use
  Company Number: US-PFIZER INC-PV202300202450

PATIENT
  Age: 52 Year
  Sex: Female

DRUGS (1)
  1. ZAVZPRET [Suspect]
     Active Substance: ZAVEGEPANT HYDROCHLORIDE
     Indication: Migraine
     Dosage: INSTILL 1 SPRAY IN 1 NOSTRIL ONCE AS NEEDED AT ONSET OF MIGRAINE. MAX 1 DOSE IN 24 HOURS

REACTIONS (3)
  - Drug ineffective [Unknown]
  - Epistaxis [Unknown]
  - Abdominal discomfort [Unknown]
